FAERS Safety Report 11836196 (Version 1)
Quarter: 2015Q4

REPORT INFORMATION
  Report Type: Spontaneous
  Country: DK (occurrence: DK)
  Receive Date: 20151215
  Receipt Date: 20151215
  Transmission Date: 20160305
  Serious: Yes (Other)
  Sender: FDA-Public Use
  Company Number: DK-PFIZER INC-2015420433

PATIENT
  Age: 49 Year
  Sex: Male

DRUGS (3)
  1. GABAPENTIN. [Suspect]
     Active Substance: GABAPENTIN
     Dosage: DOSE WAS INCREASED WITHIN THE PERIOD OF TIME
  2. GABAPENTIN. [Suspect]
     Active Substance: GABAPENTIN
     Dosage: 1500 MG, DAILY
     Dates: start: 20110913, end: 20111002
  3. GABAPENTIN. [Suspect]
     Active Substance: GABAPENTIN
     Indication: PAIN
     Dosage: 600 MG, DAILY (300 MG X 2 AT NIGHT)
     Dates: start: 20110905

REACTIONS (5)
  - Fatigue [Unknown]
  - Drug ineffective for unapproved indication [Unknown]
  - Lethargy [Unknown]
  - Erectile dysfunction [Unknown]
  - Dizziness [Unknown]

NARRATIVE: CASE EVENT DATE: 201109
